FAERS Safety Report 9779488 (Version 1)
Quarter: 2013Q4

REPORT INFORMATION
  Report Type: Report from Study
  Country: US (occurrence: US)
  Receive Date: 20131223
  Receipt Date: 20131223
  Transmission Date: 20140711
  Serious: Yes (Death, Other)
  Sender: FDA-Public Use
  Company Number: US-ASTELLAS-2013US013271

PATIENT
  Age: 74 Year
  Sex: 0

DRUGS (1)
  1. ERLOTINIB TABLET [Suspect]
     Indication: NON-SMALL CELL LUNG CANCER
     Dosage: 100 MG, UID/QD
     Route: 065

REACTIONS (4)
  - Incorrect dose administered [Unknown]
  - Death [Fatal]
  - Coma [Unknown]
  - Lower gastrointestinal haemorrhage [Unknown]
